FAERS Safety Report 5740490-5 (Version None)
Quarter: 2008Q2

REPORT INFORMATION
  Report Type: 
  Country: None (occurrence: None)
  Receive Date: 20080516
  Receipt Date: 20080411
  Transmission Date: 20081010
  Serious: Yes (Death, Life-Threatening, Hospitalization, Disabling, Other)
  Sender: FDA-Public Use
  Company Number: CZ-BAYER-200818244GPV

PATIENT
  Age: 57 Year
  Sex: Male
  Weight: 92 kg

DRUGS (6)
  1. FLUDARABINE PHOSPHATE [Suspect]
     Indication: CHRONIC LYMPHOCYTIC LEUKAEMIA RECURRENT
     Dosage: TOTAL DAILY DOSE: 60 MG
     Route: 048
     Dates: start: 20080320, end: 20080322
  2. MABTHERA [Suspect]
     Indication: CHRONIC LYMPHOCYTIC LEUKAEMIA RECURRENT
     Dosage: TOTAL DAILY DOSE: 3000 MG
     Route: 051
     Dates: start: 20080320, end: 20080320
  3. COTRIMOXAZOL AL FORTE [Concomitant]
     Indication: PROPHYLAXIS
     Route: 048
  4. ZOVIRAX [Concomitant]
     Indication: PROPHYLAXIS
     Dosage: TOTAL DAILY DOSE: 400 MG
     Route: 048
  5. CYCLOPHOSPHAMIDE [Concomitant]
     Indication: CHRONIC LYMPHOCYTIC LEUKAEMIA RECURRENT
     Dosage: TOTAL DAILY DOSE: 450 MG
     Route: 048
     Dates: start: 20080320, end: 20080322
  6. MILURIT [Concomitant]
     Indication: SUPPLEMENTATION THERAPY
     Route: 048

REACTIONS (2)
  - ANAEMIA HAEMOLYTIC AUTOIMMUNE [None]
  - CARDIAC ARREST [None]
